FAERS Safety Report 5792548-2 (Version None)
Quarter: 2008Q2

REPORT INFORMATION
  Report Type: 
  Country: None (occurrence: None)
  Receive Date: 20080626
  Receipt Date: 20080617
  Transmission Date: 20081010
  Serious: Yes (Other)
  Sender: FDA-Public Use
  Company Number: ES-AMGEN-US288118

PATIENT
  Age: 61 Year
  Sex: Female

DRUGS (6)
  1. ENBREL [Suspect]
     Indication: PSORIASIS
     Route: 058
     Dates: start: 20080527, end: 20080601
  2. ENBREL [Suspect]
     Indication: PSORIATIC ARTHROPATHY
  3. METHOTREXATE [Concomitant]
     Route: 048
     Dates: start: 20060501, end: 20080526
  4. METHOTREXATE [Concomitant]
     Route: 048
     Dates: start: 20080527, end: 20080610
  5. CEMIDON [Concomitant]
     Indication: TUBERCULIN TEST POSITIVE
     Dosage: UNKNOWN
     Route: 065
     Dates: start: 20080401, end: 20080610
  6. CEMIDON [Concomitant]
     Dosage: UNKNNOWN
     Route: 065
     Dates: start: 20080601

REACTIONS (1)
  - ERYTHRODERMIC PSORIASIS [None]
